FAERS Safety Report 5339459-4 (Version None)
Quarter: 2007Q2

REPORT INFORMATION
  Report Type: 
  Country: None (occurrence: None)
  Receive Date: 20070525
  Receipt Date: 20070517
  Transmission Date: 20071010
  Serious: Yes (Life-Threatening, Hospitalization)
  Sender: FDA-Public Use
  Company Number: 2007EU000840

PATIENT
  Age: 2 Year
  Sex: Female

DRUGS (1)
  1. TACROLIMUS [Suspect]
     Dosage: SEE IMAGE
     Route: 061
     Dates: start: 20061221

REACTIONS (4)
  - PARAINFLUENZAE VIRUS INFECTION [None]
  - PNEUMONIA [None]
  - PNEUMONIA PARAINFLUENZAE VIRAL [None]
  - VARICELLA [None]
